FAERS Safety Report 13269120 (Version 1)
Quarter: 2017Q1

REPORT INFORMATION
  Report Type: Spontaneous
  Country: US (occurrence: US)
  Receive Date: 20170224
  Receipt Date: 20170224
  Transmission Date: 20170428
  Serious: Yes (Death)
  Sender: FDA-Public Use
  Company Number: US-LPDUSPRD-20170195

PATIENT
  Age: 4 Day
  Sex: Male

DRUGS (4)
  1. SERTRALINE [Suspect]
     Active Substance: SERTRALINE HYDROCHLORIDE
     Dosage: DOSE UNKNOWN
     Route: 064
  2. PROGESTERONE INJECTION (0750-01) [Suspect]
     Active Substance: PROGESTERONE
     Dosage: DOSE UNKNOWN
     Route: 064
  3. ONDANSETRON INJECTION (4420-01) [Suspect]
     Active Substance: ONDANSETRON
     Dosage: DOSE UNKNOWN
     Route: 064
  4. ESCITALOPRAM [Suspect]
     Active Substance: ESCITALOPRAM OXALATE
     Dosage: DOSE UNKNOWN
     Route: 064

REACTIONS (5)
  - Human herpesvirus 6 infection [Fatal]
  - Congestive cardiomyopathy [Fatal]
  - Multiple organ dysfunction syndrome [Fatal]
  - Cardiac failure [Fatal]
  - Foetal exposure during pregnancy [Unknown]
